FAERS Safety Report 4531585-2 (Version None)
Quarter: 2004Q4

REPORT INFORMATION
  Report Type: 
  Country: None (occurrence: None)
  Receive Date: 20041216
  Receipt Date: 20041203
  Transmission Date: 20050328
  Serious: No
  Sender: FDA-Public Use
  Company Number: 2004-BP-13279RO

PATIENT
  Age: 61 Year
  Sex: Female

DRUGS (1)
  1. METHOTREXATE [Suspect]
     Indication: BREAST CANCER
     Dosage: 155 MG (, ONCE), IT
     Route: 037

REACTIONS (7)
  - ACCIDENTAL OVERDOSE [None]
  - CONFUSIONAL STATE [None]
  - CONVULSION [None]
  - HYPERTENSION [None]
  - MEDICATION ERROR [None]
  - MEMORY IMPAIRMENT [None]
  - SOMNOLENCE [None]
